FAERS Safety Report 6890607-4 (Version None)
Quarter: 2010Q3

REPORT INFORMATION
  Report Type: 
  Country: None (occurrence: None)
  Receive Date: 20100731
  Receipt Date: 20081229
  Transmission Date: 20110219
  Serious: No
  Sender: FDA-Public Use
  Company Number: US-PFIZER INC-2009150379

PATIENT
  Age: 55 Year
  Sex: Male
  Weight: 88.45 kg

DRUGS (3)
  1. LIPITOR [Suspect]
     Indication: BLOOD CHOLESTEROL INCREASED
     Dosage: 20 MG, 1X/DAY
     Dates: start: 20081129, end: 20081227
  2. ZOLOFT [Concomitant]
     Indication: DEPRESSION
  3. CELEBREX [Concomitant]
     Indication: ARTHRITIS

REACTIONS (1)
  - MYALGIA [None]
